FAERS Safety Report 6701861-3 (Version None)
Quarter: 2010Q2

REPORT INFORMATION
  Report Type: 
  Country: None (occurrence: None)
  Receive Date: 20100429
  Receipt Date: 20100426
  Transmission Date: 20101027
  Serious: Yes (Hospitalization)
  Sender: FDA-Public Use
  Company Number: JP-BAYER-200913104BYL

PATIENT
  Age: 51 Year
  Sex: Male
  Weight: 56 kg

DRUGS (15)
  1. NEXAVAR [Suspect]
     Indication: HEPATIC NEOPLASM MALIGNANT
     Dosage: TOTAL DAILY DOSE: 800 MG  UNIT DOSE: 200 MG
     Route: 048
     Dates: start: 20090803, end: 20090814
  2. URSO 250 [Concomitant]
     Dosage: SINCE BEFORE ADMINISTRATION
     Route: 048
  3. ZEFIX [Concomitant]
     Dosage: SINCE BEFORE ADMINISTRATION
     Route: 048
  4. HEPSERA [Concomitant]
     Dosage: SINCE BEFORE ADMINISTRATION
     Route: 048
  5. LENDORMIN D [Concomitant]
     Dosage: SINCE BEFORE ADMINISTRATION
     Route: 048
  6. MOBIC [Concomitant]
     Dosage: SINCE BEFORE ADMINISTRATION
     Route: 048
  7. LOXONIN [Concomitant]
     Route: 048
     Dates: start: 20090803, end: 20100331
  8. KERATINAMIN [Concomitant]
     Route: 061
     Dates: start: 20090803, end: 20100331
  9. ALLEGRA [Concomitant]
     Route: 048
     Dates: start: 20090814, end: 20090904
  10. TAVEGYL [Concomitant]
     Route: 048
     Dates: start: 20090814, end: 20090904
  11. PERIACTIN [Concomitant]
     Route: 048
     Dates: start: 20090814, end: 20090904
  12. DIACORT [Concomitant]
     Route: 061
     Dates: start: 20090814, end: 20090904
  13. WHITE PETROLATUM [Concomitant]
     Route: 061
     Dates: start: 20090814, end: 20090904
  14. LOCOID [Concomitant]
     Route: 061
     Dates: start: 20090814, end: 20090904
  15. PREDNISOLONE [Concomitant]
     Route: 048
     Dates: start: 20090825, end: 20090904

REACTIONS (6)
  - C-REACTIVE PROTEIN INCREASED [None]
  - HEPATIC FUNCTION ABNORMAL [None]
  - HYPOPHOSPHATAEMIA [None]
  - PALMAR-PLANTAR ERYTHRODYSAESTHESIA SYNDROME [None]
  - PLATELET COUNT DECREASED [None]
  - RASH [None]
